FAERS Safety Report 4368046-X (Version None)
Quarter: 2004Q2

REPORT INFORMATION
  Report Type: 
  Country: None (occurrence: None)
  Receive Date: 20040602
  Receipt Date: 20040525
  Transmission Date: 20050107
  Serious: Yes (Life-Threatening)
  Sender: FDA-Public Use
  Company Number: JP-BRISTOL-MYERS SQUIBB COMPANY-12596755

PATIENT
  Age: 50 Year
  Sex: Female

DRUGS (2)
  1. TAXOL [Suspect]
     Indication: OVARIAN CANCER
     Dosage: THERAPY DATES: 03-APR-2003 TO 15-MAR-2004
     Route: 042
     Dates: start: 20040315, end: 20040315
  2. PARAPLATIN [Suspect]
     Indication: OVARIAN CANCER
     Dosage: THERAPY DATES: 03-APR-2003 TO 15-MAR-2004
     Route: 042
     Dates: start: 20040315, end: 20040315

REACTIONS (1)
  - ACUTE MYELOID LEUKAEMIA [None]
